FAERS Safety Report 7162041-3 (Version None)
Quarter: 2010Q4

REPORT INFORMATION
  Report Type: 
  Country: None (occurrence: None)
  Receive Date: 20101215
  Receipt Date: 20090804
  Transmission Date: 20110411
  Serious: Yes (Other)
  Sender: FDA-Public Use
  Company Number: US-PFIZER INC-2009234920

PATIENT
  Sex: Male

DRUGS (8)
  1. LYRICA [Suspect]
     Dosage: 50 MG, 1X/DAY
     Dates: start: 20050101
  2. LYRICA [Suspect]
     Dosage: 150 MG, 3X/DAY
     Dates: start: 20090301
  3. AMITRIPTYLINE [Concomitant]
     Dosage: UNK
     Route: 048
     Dates: start: 19990101
  4. GABAPENTIN [Concomitant]
     Dosage: UNK
     Route: 048
     Dates: start: 20030101
  5. NORCO [Concomitant]
     Dosage: UNK
     Route: 048
     Dates: start: 20060101
  6. AMBIEN [Concomitant]
     Dosage: UNK
     Dates: start: 20080101
  7. EFFEXOR [Concomitant]
     Dosage: UNK
  8. MORPHINE [Concomitant]
     Dosage: UNK
     Dates: start: 20090601

REACTIONS (5)
  - CAROTID ARTERY OCCLUSION [None]
  - CEREBRAL ISCHAEMIA [None]
  - DRUG INEFFECTIVE [None]
  - LOSS OF CONSCIOUSNESS [None]
  - SUICIDE ATTEMPT [None]
